FAERS Safety Report 7144528-2 (Version None)
Quarter: 2010Q4

REPORT INFORMATION
  Report Type: 
  Country: None (occurrence: None)
  Receive Date: 20101208
  Receipt Date: 20101102
  Transmission Date: 20110411
  Serious: No
  Sender: FDA-Public Use
  Company Number: US-BAYER-201023375BCC

PATIENT
  Sex: Female
  Weight: 56.364 kg

DRUGS (1)
  1. MIDOL EXTENDED RELIEF CAPLETS [Suspect]
     Indication: DYSMENORRHOEA
     Dosage: 2 DF, UNK
     Dates: start: 20101101

REACTIONS (1)
  - INSOMNIA [None]
